FAERS Safety Report 7345563-1 (Version None)
Quarter: 2011Q1

REPORT INFORMATION
  Report Type: 
  Country: None (occurrence: None)
  Receive Date: 20110310
  Receipt Date: 20110228
  Transmission Date: 20110831
  Serious: Yes (Life-Threatening, Hospitalization)
  Sender: FDA-Public Use
  Company Number: VN-GENENTECH-314646

PATIENT
  Age: 38 Year
  Sex: Male

DRUGS (1)
  1. MABTHERA [Suspect]
     Indication: RHEUMATOID ARTHRITIS
     Dosage: 500 MG, Q2W
     Route: 042
     Dates: start: 20101124, end: 20101208

REACTIONS (2)
  - RESPIRATORY FAILURE [None]
  - PNEUMONIA [None]
